FAERS Safety Report 9183800 (Version 2)
Quarter: 2013Q2

REPORT INFORMATION
  Report Type: Report from Study
  Country: US (occurrence: US)
  Receive Date: 20130322
  Receipt Date: 20130506
  Transmission Date: 20140414
  Serious: Yes (Other)
  Sender: FDA-Public Use
  Company Number: US-BAYER-2013-033930

PATIENT
  Age: 61 Year
  Sex: Male

DRUGS (1)
  1. STIVARGA [Suspect]
     Indication: COLON CANCER
     Dosage: DAILY DOSE 160 MG
     Route: 048
     Dates: start: 20130220, end: 20130222

REACTIONS (3)
  - Headache [Recovered/Resolved]
  - Aphonia [Recovered/Resolved]
  - Dyspnoea [Recovered/Resolved]
